FAERS Safety Report 4999768-5 (Version None)
Quarter: 2006Q2

REPORT INFORMATION
  Report Type: 
  Country: None (occurrence: None)
  Receive Date: 20060511
  Receipt Date: 20060501
  Transmission Date: 20061013
  Serious: Yes (Other)
  Sender: FDA-Public Use
  Company Number: NL-GLAXOSMITHKLINE-B0423193A

PATIENT
  Age: 51 Year
  Sex: Female

DRUGS (4)
  1. SERETIDE [Suspect]
     Indication: CHRONIC OBSTRUCTIVE PULMONARY DISEASE
     Route: 055
     Dates: start: 20060317, end: 20060420
  2. MICROGYNON 30 [Concomitant]
     Route: 065
  3. PULMICORT [Concomitant]
     Dosage: 400MCG TWICE PER DAY
     Route: 065
  4. VENTOLIN [Concomitant]
     Dosage: 200MCG FOUR TIMES PER DAY
     Route: 065

REACTIONS (6)
  - DYSURIA [None]
  - NEOPLASM [None]
  - OEDEMA PERIPHERAL [None]
  - PRURITUS [None]
  - SUBCUTANEOUS HAEMATOMA [None]
  - SWELLING FACE [None]
